FAERS Safety Report 8898907 (Version 1)
Quarter: 2012Q4

REPORT INFORMATION
  Report Type: 
  Country: US (occurrence: US)
  Receive Date: 20121108
  Receipt Date: 20121108
  Transmission Date: 20130627
  Serious: No
  Sender: FDA-Public Use
  Company Number: US-AMGEN-USASP2012027695

PATIENT
  Age: 61 Year
  Sex: Male
  Weight: 113.38 kg

DRUGS (7)
  1. ENBREL [Suspect]
     Indication: PRODUCT USED FOR UNKNOWN INDICATION
     Dosage: 50 mg, qwk
     Route: 058
  2. DEXAMETHASON                       /00016001/ [Concomitant]
     Dosage: 4 mg, UNK
  3. LOPRESSOR [Concomitant]
     Dosage: 50 mg, UNK
  4. METHOTREXATE [Concomitant]
     Dosage: 2.5 mg, UNK
  5. FOLIC ACID [Concomitant]
     Dosage: 1 mg, UNK
  6. CENTRUM SILVER                     /01292501/ [Concomitant]
  7. GLUCOSAMIN CHONDROITIN             /01430901/ [Concomitant]

REACTIONS (2)
  - Injection site haemorrhage [Unknown]
  - Injection site bruising [Unknown]
